FAERS Safety Report 8161005-0 (Version None)
Quarter: 2012Q1

REPORT INFORMATION
  Report Type: 
  Country: None (occurrence: None)
  Receive Date: 20120224
  Receipt Date: 20120213
  Transmission Date: 20120608
  Serious: Yes (Death, Life-Threatening)
  Sender: FDA-Public Use
  Company Number: JP-GE HEALTHCARE MEDICAL DIAGNOSTICS-MSTR-NO-1201S-0001

PATIENT
  Sex: Male
  Weight: 53 kg

DRUGS (3)
  1. METASTRON [Suspect]
     Indication: METASTATIC PAIN
     Route: 042
     Dates: start: 20111205, end: 20111205
  2. DOCETAXEL [Concomitant]
     Dates: start: 20111221, end: 20120106
  3. PREDNISOLONE [Concomitant]

REACTIONS (3)
  - DISSEMINATED INTRAVASCULAR COAGULATION [None]
  - THROMBOCYTOPENIA [None]
  - ANAEMIA [None]
